FAERS Safety Report 9298607 (Version 1)
Quarter: 2013Q2

REPORT INFORMATION
  Report Type: Spontaneous
  Country: ES (occurrence: ES)
  Receive Date: 20130520
  Receipt Date: 20130520
  Transmission Date: 20140414
  Serious: Yes (Hospitalization)
  Sender: FDA-Public Use
  Company Number: ES-JNJFOC-20130504977

PATIENT
  Age: 44 Year
  Sex: Female

DRUGS (16)
  1. DARUNAVIR [Suspect]
     Indication: HIV INFECTION
     Route: 048
     Dates: start: 2010
  2. RITONAVIR [Suspect]
     Indication: HIV INFECTION
     Route: 065
     Dates: start: 2010
  3. KIVEXA [Suspect]
     Indication: HIV INFECTION
     Route: 065
     Dates: start: 2009
  4. TORASEMIDE [Concomitant]
     Route: 065
  5. VALSARTAN [Concomitant]
     Route: 065
  6. HYDRALAZINE [Concomitant]
     Route: 065
  7. AAS [Concomitant]
     Route: 065
  8. CALCIUM CARBONATE [Concomitant]
     Route: 065
  9. SODIUM BICARBONATE [Concomitant]
     Route: 065
  10. VITAMIN D [Concomitant]
     Route: 065
  11. ALLOPURINOL [Concomitant]
     Route: 065
  12. IRON [Concomitant]
     Route: 065
  13. INSULIN [Concomitant]
     Route: 065
  14. ALPRAZOLAM [Concomitant]
     Route: 065
  15. DARBEPOETIN ALFA [Concomitant]
     Route: 065
  16. NITROGLYCERIN [Concomitant]
     Route: 065

REACTIONS (3)
  - Renal failure acute [Unknown]
  - Acute pulmonary oedema [Unknown]
  - Hypertensive emergency [Recovered/Resolved]
